FAERS Safety Report 10092802 (Version 1)
Quarter: 2014Q2

REPORT INFORMATION
  Report Type: Spontaneous
  Country: US (occurrence: US)
  Receive Date: 20140421
  Receipt Date: 20140421
  Transmission Date: 20141212
  Serious: No
  Sender: FDA-Public Use
  Company Number: US-SANOFI-AVENTIS-2013SA087027

PATIENT
  Sex: Female

DRUGS (4)
  1. ALLEGRA [Suspect]
     Indication: HYPERSENSITIVITY
     Route: 048
  2. HYDROXYZINE [Concomitant]
  3. DOXEPIN [Concomitant]
  4. CYPROHEPTADINE [Concomitant]

REACTIONS (1)
  - Extra dose administered [Unknown]
